FAERS Safety Report 13257666 (Version 1)
Quarter: 2017Q1

REPORT INFORMATION
  Report Type: Spontaneous
  Country: GB (occurrence: GB)
  Receive Date: 20170221
  Receipt Date: 20170221
  Transmission Date: 20170428
  Serious: Yes (Other)
  Sender: FDA-Public Use
  Company Number: GB-MYLANLABS-2017M1010544

PATIENT

DRUGS (2)
  1. VOLTAROL [Concomitant]
     Active Substance: DICLOFENAC SODIUM
     Indication: ARTHRITIS
  2. CLOZARIL [Suspect]
     Active Substance: CLOZAPINE
     Indication: PRODUCT USED FOR UNKNOWN INDICATION

REACTIONS (15)
  - Arrhythmia [Unknown]
  - Delirium tremens [Unknown]
  - Reduced facial expression [Unknown]
  - Somnolence [Unknown]
  - Loss of libido [Unknown]
  - Sexual dysfunction [Unknown]
  - Tremor [Unknown]
  - Cerebral disorder [Unknown]
  - Listless [Unknown]
  - Ejaculation disorder [Unknown]
  - Weight increased [Unknown]
  - Impaired quality of life [Unknown]
  - Dyskinesia [Unknown]
  - Bedridden [Unknown]
  - Hypokinesia [Unknown]
